FAERS Safety Report 25276131 (Version 1)
Quarter: 2025Q2

REPORT INFORMATION
  Report Type: Spontaneous
  Country: UA (occurrence: UA)
  Receive Date: 20250507
  Receipt Date: 20250507
  Transmission Date: 20250717
  Serious: Yes (Other)
  Sender: CHEPLAPHARM
  Company Number: UA-ROCHE-10000265518

PATIENT
  Age: 56 Year
  Sex: Male
  Weight: 83 kg

DRUGS (3)
  1. CAPECITABINE [Suspect]
     Active Substance: CAPECITABINE
     Indication: Rectal cancer
     Dates: start: 20250414
  2. OXALIPLATIN [Suspect]
     Active Substance: OXALIPLATIN
     Indication: Rectal cancer
     Dates: start: 20250414
  3. NEXIUM [Suspect]
     Active Substance: ESOMEPRAZOLE MAGNESIUM
     Indication: Rectal cancer
     Dates: start: 20250414

REACTIONS (12)
  - Poisoning [Unknown]
  - Asthenia [Unknown]
  - Malaise [Unknown]
  - Cold sweat [Unknown]
  - Pulse abnormal [Unknown]
  - Nausea [Unknown]
  - Abdominal discomfort [Not Recovered/Not Resolved]
  - Abdominal distension [Not Recovered/Not Resolved]
  - Diarrhoea [Unknown]
  - Myalgia [Unknown]
  - Ill-defined disorder [Unknown]
  - Dehydration [Unknown]

NARRATIVE: CASE EVENT DATE: 20250414
